FAERS Safety Report 4858799-6 (Version None)
Quarter: 2005Q4

REPORT INFORMATION
  Report Type: 
  Country: None (occurrence: None)
  Receive Date: 20051219
  Receipt Date: 20051102
  Transmission Date: 20060501
  Serious: No
  Sender: FDA-Public Use
  Company Number: US-GLAXOSMITHKLINE-A0580560A

PATIENT
  Age: 27 Year
  Sex: Female

DRUGS (2)
  1. NICODERM CQ [Suspect]
     Dates: start: 20051031, end: 20051101
  2. DEPO-PROVERA [Concomitant]

REACTIONS (1)
  - ABDOMINAL PAIN UPPER [None]
